FAERS Safety Report 15205717 (Version 1)
Quarter: 2018Q3

REPORT INFORMATION
  Report Type: Spontaneous
  Country: US (occurrence: US)
  Receive Date: 20180727
  Receipt Date: 20180727
  Transmission Date: 20181010
  Serious: No
  Sender: FDA-Public Use
  Company Number: US-UNITED THERAPEUTICS-UNT-2018-009726

PATIENT
  Age: 46 Year
  Sex: Female
  Weight: 52.15 kg

DRUGS (2)
  1. REMODULIN [Suspect]
     Active Substance: TREPROSTINIL
     Indication: PULMONARY ARTERIAL HYPERTENSION
     Dosage: 0.020 ?G/KG, CONTINUING
     Route: 058
     Dates: start: 20180620
  2. REMODULIN [Suspect]
     Active Substance: TREPROSTINIL
     Indication: PULMONARY HYPERTENSION

REACTIONS (13)
  - Dyspnoea exertional [Unknown]
  - Infusion site warmth [Unknown]
  - Infusion site pain [Unknown]
  - Headache [Unknown]
  - Hypotension [Unknown]
  - Infusion site erythema [Unknown]
  - Musculoskeletal pain [Not Recovered/Not Resolved]
  - Pain in jaw [Unknown]
  - Palpitations [Unknown]
  - Infusion site irritation [Unknown]
  - Infusion site swelling [Unknown]
  - Infusion site pruritus [Unknown]
  - Back pain [Unknown]

NARRATIVE: CASE EVENT DATE: 2018
